FAERS Safety Report 25143643 (Version 5)
Quarter: 2025Q4

REPORT INFORMATION
  Report Type: Report from Study
  Country: EU (occurrence: EU)
  Receive Date: 20250401
  Receipt Date: 20251223
  Transmission Date: 20260117
  Serious: No
  Sender: NOVARTIS
  Company Number: EU-002147023-NVSC2024DE227572

PATIENT
  Age: 36 Year
  Sex: Female
  Weight: 118 kg

DRUGS (6)
  1. COSENTYX [Suspect]
     Active Substance: SECUKINUMAB
     Indication: Hidradenitis
     Dosage: 300 MG, ONCE/SINGLE
     Route: 058
     Dates: start: 20241105, end: 20241105
  2. COSENTYX [Suspect]
     Active Substance: SECUKINUMAB
     Dosage: 300 MG, ONCE/SINGLE
     Route: 058
     Dates: start: 20241112, end: 20241112
  3. COSENTYX [Suspect]
     Active Substance: SECUKINUMAB
     Dosage: 300 MG, ONCE/SINGLE
     Route: 058
     Dates: start: 20241119, end: 20241119
  4. COSENTYX [Suspect]
     Active Substance: SECUKINUMAB
     Dosage: 300 MG, ONCE/SINGLE
     Route: 058
     Dates: start: 20241126, end: 20241126
  5. COSENTYX [Suspect]
     Active Substance: SECUKINUMAB
     Dosage: 300 MG, ONCE/SINGLE
     Route: 058
     Dates: start: 20241203, end: 20241203
  6. COSENTYX [Suspect]
     Active Substance: SECUKINUMAB
     Dosage: 300 MG, ONCE/SINGLE
     Route: 058
     Dates: start: 20241231, end: 20241231

REACTIONS (7)
  - Hidradenitis [Unknown]
  - Abscess [Unknown]
  - Subcutaneous abscess [Unknown]
  - Erythema [Unknown]
  - Skin exfoliation [Unknown]
  - Acne [Recovered/Resolved]
  - Acne conglobata [Recovered/Resolved]

NARRATIVE: CASE EVENT DATE: 20241101
